FAERS Safety Report 12819256 (Version 1)
Quarter: 2016Q4

REPORT INFORMATION
  Report Type: Spontaneous
  Country: US (occurrence: US)
  Receive Date: 20161006
  Receipt Date: 20161006
  Transmission Date: 20170207
  Serious: No
  Sender: FDA-Public Use
  Company Number: US-DRREDDYS-USA/USA/16/0076542

PATIENT
  Age: 29 Year
  Sex: Female

DRUGS (1)
  1. SUMATRIPTAN SUCCINATE TABLETS [Suspect]
     Active Substance: SUMATRIPTAN SUCCINATE
     Indication: HEADACHE
     Route: 048
     Dates: start: 20160211

REACTIONS (11)
  - Hypoaesthesia [Recovered/Resolved]
  - Neck pain [Unknown]
  - Abdominal pain upper [Unknown]
  - Chest pain [Unknown]
  - Burning sensation [Recovered/Resolved]
  - Head discomfort [Unknown]
  - Muscle tightness [Unknown]
  - Tension headache [Unknown]
  - Dyspnoea [Unknown]
  - Muscular weakness [Recovered/Resolved]
  - Pain in jaw [Unknown]

NARRATIVE: CASE EVENT DATE: 20160211
